FAERS Safety Report 22133857 (Version 1)
Quarter: 2023Q1

REPORT INFORMATION
  Report Type: Report from Study
  Country: DO (occurrence: DO)
  Receive Date: 20230324
  Receipt Date: 20230324
  Transmission Date: 20230418
  Serious: Yes (Hospitalization, Other)
  Sender: FDA-Public Use
  Company Number: DO-ABBVIE-4696871

PATIENT
  Age: 31 Year
  Sex: Male
  Weight: 87 kg

DRUGS (2)
  1. HUMIRA [Suspect]
     Active Substance: ADALIMUMAB
     Indication: Crohn^s disease
     Route: 058
     Dates: end: 20230208
  2. HUMIRA [Suspect]
     Active Substance: ADALIMUMAB

REACTIONS (6)
  - Intestinal obstruction [Recovering/Resolving]
  - Vomiting [Unknown]
  - Nausea [Recovering/Resolving]
  - Abdominal abscess [Recovering/Resolving]
  - Abdominal pain [Recovering/Resolving]
  - Malaise [Recovering/Resolving]

NARRATIVE: CASE EVENT DATE: 20230220
